FAERS Safety Report 6373072-5 (Version None)
Quarter: 2009Q3

REPORT INFORMATION
  Report Type: 
  Country: None (occurrence: None)
  Receive Date: 20090924
  Receipt Date: 20090206
  Transmission Date: 20100115
  Serious: No
  Sender: FDA-Public Use
  Company Number: US-ASTRAZENECA-2009UW03615

PATIENT
  Age: 47 Year
  Sex: Male
  Weight: 181.4 kg

DRUGS (9)
  1. SEROQUEL [Suspect]
     Route: 048
  2. XANAX [Suspect]
     Route: 048
  3. WARFARIN SODIUM [Concomitant]
  4. LISINOPRIL [Concomitant]
  5. NITROGLYCERIN [Concomitant]
  6. IBUTERAL [Concomitant]
  7. HYDROCHLORIDE [Concomitant]
  8. SIMVASTATIN [Concomitant]
  9. PAXIL [Concomitant]

REACTIONS (1)
  - ROAD TRAFFIC ACCIDENT [None]
